FAERS Safety Report 9347139 (Version 1)
Quarter: 2013Q2

REPORT INFORMATION
  Report Type: Spontaneous
  Country: GB (occurrence: GB)
  Receive Date: 20130613
  Receipt Date: 20130613
  Transmission Date: 20140414
  Serious: Yes (Death)
  Sender: FDA-Public Use
  Company Number: CHPA2013GB009681

PATIENT
  Sex: Male

DRUGS (1)
  1. SCOPODERM TTS [Suspect]
     Indication: SALIVARY HYPERSECRETION
     Dosage: UNK, UNK
     Route: 062

REACTIONS (3)
  - Death [Fatal]
  - Off label use [Unknown]
  - Therapeutic response unexpected [Unknown]
